FAERS Safety Report 12628487 (Version 1)
Quarter: 2016Q3

REPORT INFORMATION
  Report Type: Spontaneous
  Country: US (occurrence: None)
  Receive Date: 20160805
  Receipt Date: 20160805
  Transmission Date: 20161109
  Serious: Yes (Hospitalization, Other)
  Sender: FDA-Public Use
  Company Number: None

PATIENT
  Age: 39 Year
  Sex: Female
  Weight: 86.18 kg

DRUGS (6)
  1. MAGNESIUM [Concomitant]
     Active Substance: MAGNESIUM
  2. LEVAQUIN [Suspect]
     Active Substance: LEVOFLOXACIN
     Indication: PELVIC PAIN
     Route: 048
     Dates: start: 20160705, end: 20160715
  3. LEVAQUIN [Suspect]
     Active Substance: LEVOFLOXACIN
     Indication: PELVIC INFLAMMATORY DISEASE
     Route: 048
     Dates: start: 20160705, end: 20160715
  4. XANAX [Concomitant]
     Active Substance: ALPRAZOLAM
  5. MULTIVITAMIN [Concomitant]
     Active Substance: VITAMINS
  6. STEROIDS [Concomitant]
     Active Substance: UNSPECIFIED INGREDIENT

REACTIONS (6)
  - Psoriatic arthropathy [None]
  - Arthralgia [None]
  - Anxiety [None]
  - Hypoaesthesia [None]
  - Headache [None]
  - Neuropathy peripheral [None]

NARRATIVE: CASE EVENT DATE: 20160715
